FAERS Safety Report 23367554 (Version 6)
Quarter: 2024Q1

REPORT INFORMATION
  Report Type: Spontaneous
  Country: US (occurrence: US)
  Receive Date: 20240104
  Receipt Date: 20240323
  Transmission Date: 20240409
  Serious: Yes (Hospitalization, Other)
  Sender: FDA-Public Use
  Company Number: US-UNITED THERAPEUTICS-UNT-2023-033427

PATIENT
  Sex: Female
  Weight: 93.878 kg

DRUGS (44)
  1. REMODULIN [Suspect]
     Active Substance: TREPROSTINIL
     Indication: Pulmonary arterial hypertension
     Dosage: 0.02217 ?G/KG, (27UL/HR), CONTINUING
     Route: 058
     Dates: start: 202311
  2. REMODULIN [Suspect]
     Active Substance: TREPROSTINIL
     Dosage: 0.022 ?G/KG, CONTINUING
     Route: 058
     Dates: start: 202311
  3. REMODULIN [Suspect]
     Active Substance: TREPROSTINIL
     Dosage: 0.02874 ?G/KG, CONTINUING
     Route: 058
     Dates: start: 2023
  4. REMODULIN [Suspect]
     Active Substance: TREPROSTINIL
     Dosage: UNK, CONTINUING
     Route: 058
     Dates: start: 202311
  5. REMODULIN [Suspect]
     Active Substance: TREPROSTINIL
     Indication: Pulmonary arterial hypertension
     Dosage: 0.02874 ?G/KG, CONTINUING
     Route: 058
     Dates: start: 2023
  6. REMODULIN [Suspect]
     Active Substance: TREPROSTINIL
     Dosage: 0.02956 ?G/KG, CONTINUING
     Route: 058
     Dates: start: 2023
  7. REMODULIN [Suspect]
     Active Substance: TREPROSTINIL
     Dosage: 0.03284 ?G/KG, CONTINUING
     Route: 058
     Dates: start: 2023
  8. REMODULIN [Suspect]
     Active Substance: TREPROSTINIL
     Dosage: 0.03612 ?G/KG, CONTINUING
     Route: 058
  9. REMODULIN [Suspect]
     Active Substance: TREPROSTINIL
     Dosage: 0.03941 ?G/KG, CONTINUING
     Route: 058
  10. REMODULIN [Suspect]
     Active Substance: TREPROSTINIL
     Dosage: UNK, CONTINUING
     Route: 058
     Dates: start: 2023
  11. REMODULIN [Suspect]
     Active Substance: TREPROSTINIL
     Indication: Pulmonary arterial hypertension
     Dosage: 0.03941 ?G/KG, CONTINUING
     Route: 041
  12. REMODULIN [Suspect]
     Active Substance: TREPROSTINIL
     Dosage: 0.039 ?G/KG, CONTINUING
     Route: 041
  13. REMODULIN [Suspect]
     Active Substance: TREPROSTINIL
     Dosage: UNK, CONTINUING
     Route: 041
     Dates: end: 202402
  14. TRIAMCINOLONE ACETONIDE [Suspect]
     Active Substance: TRIAMCINOLONE ACETONIDE
     Indication: Catheter site pain
     Dosage: UNK
     Route: 065
  15. LIDOCAINE [Suspect]
     Active Substance: LIDOCAINE
     Indication: Catheter site pain
     Dosage: UNK
     Route: 065
  16. LIDOCAINE\PRILOCAINE [Concomitant]
     Active Substance: LIDOCAINE\PRILOCAINE
     Indication: Product used for unknown indication
     Dosage: UNK
     Route: 065
  17. PROVENTIL [Concomitant]
     Active Substance: ALBUTEROL
     Indication: Wheezing
     Dosage: 3 ML, PRN (EVERY 6 MONTH)
  18. PROVENTIL [Concomitant]
     Active Substance: ALBUTEROL
     Indication: Dyspnoea
     Dosage: 2 PUFFS, PRN (EVERY 6 HOURS)
  19. ABILIFY [Concomitant]
     Active Substance: ARIPIPRAZOLE
     Indication: Product used for unknown indication
     Dosage: 2 MG, QD (1 TABLET BY MOUTH)
     Route: 048
  20. LIPITOR [Concomitant]
     Active Substance: ATORVASTATIN CALCIUM
     Indication: Product used for unknown indication
     Dosage: 80 MG, QD (NIGHTLY)
     Route: 048
  21. IMURAN [Concomitant]
     Active Substance: AZATHIOPRINE
     Indication: Product used for unknown indication
     Dosage: 50 MG, BID (1 TABLET BY MOUTH 2 TIMES A DAY)
     Route: 048
  22. TESSALON [Concomitant]
     Active Substance: BENZONATATE
     Indication: Cough
     Dosage: (100-200 MG BY MOUTH 3 TIMES A DAY, PRN (TID)
     Route: 048
  23. FLEXERIL [Concomitant]
     Active Substance: CYCLOBENZAPRINE HYDROCHLORIDE
     Indication: Product used for unknown indication
     Dosage: 10 MG, BID (1 TABLET BY MOUTH 2 TIMES A DAY)
     Route: 048
  24. CARDIZEM CD [Concomitant]
     Active Substance: DILTIAZEM HYDROCHLORIDE
     Indication: Product used for unknown indication
     Dosage: 240 MG, QD (1 CAPSULE BY MOUTH 1 TIME A DAY)
     Route: 048
  25. LEXAPRO [Concomitant]
     Active Substance: ESCITALOPRAM OXALATE
     Indication: Product used for unknown indication
     Dosage: 5 MG, QD (1 TABLET BY MOUTH 1 TIME A DAY)
     Route: 048
  26. PEPCID [Concomitant]
     Active Substance: FAMOTIDINE
     Indication: Product used for unknown indication
     Dosage: 40 MG, QD (1 TABLET BY MOUTH 1 TIME A DAY)
     Route: 048
  27. TRELEGY ELLIPTA [Concomitant]
     Active Substance: FLUTICASONE FUROATE\UMECLIDINIUM BROMIDE\VILANTEROL TRIFENATATE
     Indication: Product used for unknown indication
     Dosage: (1 PUFF INTO THE LUNGS ONE TIME A A DAY), QD
  28. LASIX [Concomitant]
     Active Substance: FUROSEMIDE
     Indication: Product used for unknown indication
     Dosage: 40 MG, BID (T TABLET BY MOUTH 2 TIMES A DAY)
     Route: 048
  29. NEURONTIN [Concomitant]
     Active Substance: GABAPENTIN
     Indication: Product used for unknown indication
     Dosage: 400 MG, QID (TAKE ONE CAPSULE (400 MG TOTAL) BY MOUTH IN THE MORNING AND ONE CAPSULE (400 MG TOTAL)
     Route: 048
  30. CHONDROITIN SULFATE A\GLUCOSAMINE [Concomitant]
     Active Substance: CHONDROITIN SULFATE A\GLUCOSAMINE
     Indication: Product used for unknown indication
     Dosage: 1 TABLET, QD (1 TABLET BY MOUTH 1 TIME A DAY)
     Route: 048
  31. SOLU-CORTEF [Concomitant]
     Active Substance: HYDROCORTISONE SODIUM SUCCINATE
     Indication: Prophylaxis
     Dosage: 100 MG, PRN (INFUSE 2 ML)
  32. ATARAX [Concomitant]
     Active Substance: HYDROXYZINE HYDROCHLORIDE
     Indication: Anxiety
     Dosage: 25 MG, PRN (1 TABLET BY MOUTH 3 TIMES A DAY AS NEEDED FOR ANXIETY)
     Route: 048
  33. JARDIANCE [Concomitant]
     Active Substance: EMPAGLIFLOZIN
     Indication: Product used for unknown indication
     Dosage: 25 MG, QD (1 TABLET BY MOUTH 1 TIME A DAY)
     Route: 048
  34. OPSUMIT [Concomitant]
     Active Substance: MACITENTAN
     Indication: Product used for unknown indication
     Dosage: 10 MG, QD (1 TABLET BY MOUTH 1 TIME A DAY)
     Route: 048
  35. SINGULAIR [Concomitant]
     Active Substance: MONTELUKAST SODIUM
     Indication: Product used for unknown indication
     Dosage: 10 MG, QD (1 TABLET BY MOUTH NIGHTLY)
     Route: 048
  36. MOVANTIK [Concomitant]
     Active Substance: NALOXEGOL OXALATE
     Indication: Product used for unknown indication
     Dosage: 25 MG, QD (1 TABLET BY MOUTH 1 TIME A DAY)
     Route: 048
  37. NARCAN [Concomitant]
     Active Substance: NALOXONE HYDROCHLORIDE
     Indication: Product used for unknown indication
     Dosage: PRN (1 SPRAY BY NASAL ROUTE EVERY 2 MINUTES AS NEEDED)
     Route: 045
  38. NURTEC ODT [Concomitant]
     Active Substance: RIMEGEPANT SULFATE
     Indication: Product used for unknown indication
     Dosage: 75 MG, PRN (DISSOLVE 1 TABLET ON TONGUE DAILY AS NEEDED)
     Route: 060
  39. DITROPAN XL [Concomitant]
     Active Substance: OXYBUTYNIN CHLORIDE
     Indication: Product used for unknown indication
     Dosage: 5 MG, QD (1 TABLET BY MOUTH 1 TIME A DAY)
     Route: 048
  40. PERCOCET [Concomitant]
     Active Substance: ACETAMINOPHEN\OXYCODONE HYDROCHLORIDE
     Indication: Product used for unknown indication
     Dosage: PRN (1 TABLET BY MOUTH EVERY 6 HOURS AS NEEDED)
     Route: 048
  41. PROTONIX [Concomitant]
     Active Substance: PANTOPRAZOLE SODIUM
     Indication: Product used for unknown indication
     Dosage: 40 MG, BID (1 TABLET BY MOUTH 2 TIMES A DAY)
     Route: 048
  42. POTASSIUM CHLORIDE [Concomitant]
     Active Substance: POTASSIUM CHLORIDE
     Indication: Product used for unknown indication
     Dosage: 20 MEQ, QD (1 TABLET BY MOUTH 1 TIME A DAY)
     Route: 048
  43. DELTASONE [Concomitant]
     Active Substance: PREDNISONE
     Indication: Product used for unknown indication
     Dosage: 10 MG, QD (1 TABLET BY MOUTH 1 TIME A DAY)
     Route: 048
  44. REVATIO [Concomitant]
     Active Substance: SILDENAFIL CITRATE
     Indication: Product used for unknown indication
     Dosage: 20 MG, TID (1 TABLET BY MOUTH 3 TIMES A DAY)
     Route: 048

REACTIONS (23)
  - Dyspnoea [Unknown]
  - Heart rate increased [Unknown]
  - Catheter site infection [Recovering/Resolving]
  - Pneumonia influenzal [Unknown]
  - Cardiac failure congestive [Unknown]
  - Infection [Unknown]
  - Pneumonia [Not Recovered/Not Resolved]
  - Oedema peripheral [Not Recovered/Not Resolved]
  - Fluid retention [Not Recovered/Not Resolved]
  - Hypertension [Unknown]
  - Chest pain [Unknown]
  - Catheter site pain [Not Recovered/Not Resolved]
  - Dyspnoea exertional [Not Recovered/Not Resolved]
  - Product administration interrupted [Unknown]
  - Device dislocation [Unknown]
  - Headache [Unknown]
  - Nausea [Unknown]
  - Dyspepsia [Unknown]
  - Catheter site erythema [Unknown]
  - Catheter site swelling [Unknown]
  - Infusion site inflammation [Unknown]
  - Therapy non-responder [Unknown]
  - Oxygen consumption increased [Unknown]

NARRATIVE: CASE EVENT DATE: 20230101
